FAERS Safety Report 22353752 (Version 1)
Quarter: 2023Q2

REPORT INFORMATION
  Report Type: Spontaneous
  Country: US (occurrence: US)
  Receive Date: 20230523
  Receipt Date: 20230523
  Transmission Date: 20230722
  Serious: Yes (Other)
  Sender: FDA-Public Use
  Company Number: US-MSNLABS-2023MSNSPO00788

PATIENT

DRUGS (3)
  1. CAPECITABINE [Suspect]
     Active Substance: CAPECITABINE
     Indication: Product used for unknown indication
     Dosage: 3 TABLETS
     Route: 065
     Dates: start: 20230424, end: 20230504
  2. CAPECITABINE [Suspect]
     Active Substance: CAPECITABINE
     Dosage: 1 TABLET
     Route: 065
     Dates: start: 20230424, end: 20230504
  3. ZOFRAN [Concomitant]
     Active Substance: ONDANSETRON HYDROCHLORIDE
     Indication: Product used for unknown indication
     Route: 065

REACTIONS (6)
  - Drug intolerance [Recovered/Resolved]
  - Hallucination [Recovered/Resolved]
  - Retching [Recovered/Resolved]
  - Feeling abnormal [Recovered/Resolved]
  - Dizziness [Recovered/Resolved]
  - Asthenia [Recovered/Resolved]
